FAERS Safety Report 9035843 (Version 1)
Quarter: 2013Q1

REPORT INFORMATION
  Report Type: Spontaneous
  Country: US (occurrence: US)
  Receive Date: 20130129
  Receipt Date: 20130129
  Transmission Date: 20140127
  Serious: No
  Sender: FDA-Public Use
  Company Number: US-ABBOTT-12P-163-0927879-00

PATIENT
  Age: 34 Year
  Sex: Male
  Weight: 113.5 kg

DRUGS (3)
  1. HUMIRA 40 MG/ 0.8 ML PRE-FILLED SYRINGE [Suspect]
     Indication: PSORIASIS
     Dates: start: 20120328, end: 20120328
  2. HUMIRA 40 MG/ 0.8 ML PRE-FILLED SYRINGE [Suspect]
     Dates: start: 20120404, end: 20120404
  3. TOPICAL OINTMENTS [Concomitant]
     Indication: PSORIASIS

REACTIONS (4)
  - Lymphadenopathy [Unknown]
  - Neck pain [Unknown]
  - Injection site swelling [Unknown]
  - Injection site erythema [Unknown]
